FAERS Safety Report 9078394 (Version 2)
Quarter: 2013Q1

REPORT INFORMATION
  Report Type: Spontaneous
  Country: JP (occurrence: JP)
  Receive Date: 20130130
  Receipt Date: 20130211
  Transmission Date: 20140127
  Serious: Yes (Other)
  Sender: FDA-Public Use
  Company Number: JP-ASTRAZENECA-2013SE05288

PATIENT
  Age: 17841 Day
  Sex: Male

DRUGS (3)
  1. CRESTOR [Suspect]
     Indication: HYPERCHOLESTEROLAEMIA
     Route: 048
     Dates: start: 20120725, end: 20130111
  2. ALLOPURINOL [Concomitant]
     Indication: HYPERURICAEMIA
     Dosage: ZYLORIC
  3. ALLOPURINOL [Concomitant]
     Indication: HYPERURICAEMIA
     Route: 048
     Dates: start: 20060511

REACTIONS (1)
  - Haemangioma of liver [Not Recovered/Not Resolved]
